FAERS Safety Report 6593156-6 (Version None)
Quarter: 2010Q1

REPORT INFORMATION
  Report Type: 
  Country: None (occurrence: None)
  Receive Date: 20100222
  Receipt Date: 20100210
  Transmission Date: 20100710
  Serious: Yes (Hospitalization)
  Sender: FDA-Public Use
  Company Number: PHHY2009AT55095

PATIENT
  Sex: Female
  Weight: 66 kg

DRUGS (1)
  1. ACLASTA [Suspect]
     Indication: OSTEOPOROSIS
     Dosage: UNK
     Dates: start: 20091125, end: 20091125

REACTIONS (4)
  - BLOOD PRESSURE ABNORMAL [None]
  - BONE PAIN [None]
  - CIRCULATORY COLLAPSE [None]
  - HYPERTENSIVE CRISIS [None]
